FAERS Safety Report 9310591 (Version 3)
Quarter: 2013Q2

REPORT INFORMATION
  Report Type: Spontaneous
  Country: US (occurrence: US)
  Receive Date: 20130527
  Receipt Date: 20130621
  Transmission Date: 20140414
  Serious: Yes (Other)
  Sender: FDA-Public Use
  Company Number: US-009507513-1305USA013659

PATIENT
  Age: 29 Year
  Sex: Female
  Weight: 57.6 kg

DRUGS (3)
  1. IMPLANON [Suspect]
     Indication: CONTRACEPTION
     Dosage: UNK
     Route: 059
     Dates: start: 20111025
  2. ZYRTEC [Concomitant]
     Indication: HYPERSENSITIVITY
     Dosage: UNK, TIW
  3. VITAMIN D (UNSPECIFIED) [Concomitant]

REACTIONS (4)
  - Hypersensitivity [Not Recovered/Not Resolved]
  - Local swelling [Not Recovered/Not Resolved]
  - Vaginal haemorrhage [Not Recovered/Not Resolved]
  - Menstruation normal [Not Recovered/Not Resolved]
